FAERS Safety Report 4788689-9 (Version None)
Quarter: 2005Q4

REPORT INFORMATION
  Report Type: 
  Country: None (occurrence: None)
  Receive Date: 20051003
  Receipt Date: 20050629
  Transmission Date: 20060501
  Serious: Yes (Hospitalization)
  Sender: FDA-Public Use
  Company Number: 141682USA

PATIENT
  Age: 16 Year
  Sex: Female
  Weight: 73.9 kg

DRUGS (1)
  1. SULFAMETHOXAZOLE + TRIMETHOPRIM [Suspect]
     Indication: SINUSITIS
     Dates: start: 20050301, end: 20050310

REACTIONS (2)
  - PETECHIAE [None]
  - THROMBOCYTOPENIA [None]
